FAERS Safety Report 6853941-X (Version None)
Quarter: 2010Q3

REPORT INFORMATION
  Report Type: 
  Country: None (occurrence: None)
  Receive Date: 20100717
  Receipt Date: 20080207
  Transmission Date: 20110219
  Serious: No
  Sender: FDA-Public Use
  Company Number: US-PFIZER INC-2007099690

PATIENT
  Sex: Female
  Weight: 47.2 kg

DRUGS (4)
  1. CHANTIX [Suspect]
     Indication: SMOKING CESSATION THERAPY
     Dates: start: 20071111
  2. DIGITEK [Concomitant]
  3. ATENOLOL [Concomitant]
  4. ALPRAZOLAM [Concomitant]

REACTIONS (4)
  - ABDOMINAL DISCOMFORT [None]
  - BURNING SENSATION [None]
  - NAUSEA [None]
  - SLEEP DISORDER [None]
